FAERS Safety Report 9856454 (Version 1)
Quarter: 2014Q1

REPORT INFORMATION
  Report Type: Spontaneous
  Country: IT (occurrence: IT)
  Receive Date: 20140130
  Receipt Date: 20140130
  Transmission Date: 20141002
  Serious: Yes (Hospitalization)
  Sender: FDA-Public Use
  Company Number: IT-TEVA-457020ISR

PATIENT
  Age: 52 Year
  Sex: Male

DRUGS (5)
  1. AMOXICILLIN [Suspect]
     Indication: HELICOBACTER INFECTION
     Dosage: 1000MG TOTAL
     Route: 048
     Dates: start: 20131031, end: 20131031
  2. CLARITHROMYCIN [Suspect]
     Indication: HELICOBACTER INFECTION
     Dosage: 500MG TOTAL
     Route: 048
     Dates: start: 20131031, end: 20131031
  3. LOBIVON - 5 MG COMPRESSE [Concomitant]
     Indication: HYPERTENSION
  4. PANTOPRAZOLE SODIUM [Concomitant]
     Indication: HELICOBACTER GASTRITIS
  5. MESALAZINE [Concomitant]
     Indication: IRRITABLE BOWEL SYNDROME

REACTIONS (4)
  - Dyspnoea [Recovered/Resolved]
  - Nausea [Recovered/Resolved]
  - Rash [Recovered/Resolved]
  - Tachycardia [Recovered/Resolved]
